FAERS Safety Report 5224418-2 (Version None)
Quarter: 2007Q2

REPORT INFORMATION
  Report Type: 
  Country: None (occurrence: None)
  Receive Date: 20070130
  Receipt Date: 20070122
  Transmission Date: 20071010
  Serious: Yes (Life-Threatening, Hospitalization, Other)
  Sender: FDA-Public Use
  Company Number: JP-PFIZER INC-2006137482

PATIENT
  Age: 81 Year
  Sex: Male
  Weight: 56.5 kg

DRUGS (22)
  1. SOLU-CORTEF [Suspect]
     Indication: PREMEDICATION
     Route: 042
     Dates: start: 20061023, end: 20061023
  2. SOLU-CORTEF [Suspect]
     Indication: HYPERSENSITIVITY
  3. SOLU-MEDROL [Suspect]
     Indication: PREMEDICATION
     Route: 042
     Dates: start: 20061006, end: 20061024
  4. SOLU-MEDROL [Suspect]
     Indication: WHEEZING
  5. SOLU-MEDROL [Suspect]
     Indication: TRANSFUSION
  6. SOLU-MEDROL [Suspect]
     Indication: HYPERSENSITIVITY
  7. ALFACALCIDOL [Concomitant]
     Route: 048
  8. MUCODYNE [Concomitant]
     Route: 048
  9. PREDNISOLONE [Concomitant]
     Indication: MYELOFIBROSIS
     Route: 048
  10. SELBEX [Concomitant]
     Route: 048
  11. GASTER OD [Concomitant]
     Route: 048
  12. ENALAPRIL MALEATE [Concomitant]
     Route: 048
     Dates: start: 20061004, end: 20061101
  13. MAGNESIUM OXIDE [Concomitant]
     Route: 048
  14. LASIX [Concomitant]
     Route: 048
  15. PRIMOBOLAN-DEPOT INJ [Concomitant]
     Route: 048
  16. PREDNISOLONE [Concomitant]
     Route: 042
     Dates: start: 20061006, end: 20061015
  17. FLUITRAN [Concomitant]
     Route: 048
     Dates: start: 20061018
  18. CLARITHROMYCIN [Concomitant]
     Route: 048
     Dates: start: 20061016, end: 20061030
  19. VENETLIN [Concomitant]
     Route: 055
  20. BISOLVON [Concomitant]
     Route: 055
  21. AZUNOL [Concomitant]
  22. HEPARIN [Concomitant]
     Route: 042
     Dates: start: 20061006

REACTIONS (3)
  - DEEP VEIN THROMBOSIS [None]
  - HEPARIN-INDUCED THROMBOCYTOPENIA [None]
  - SHOCK [None]
